FAERS Safety Report 7727228-7 (Version None)
Quarter: 2011Q3

REPORT INFORMATION
  Report Type: 
  Country: None (occurrence: None)
  Receive Date: 20110902
  Receipt Date: 20110819
  Transmission Date: 20111222
  Serious: Yes (Other)
  Sender: FDA-Public Use
  Company Number: US-BAYER-2011-076842

PATIENT
  Age: 35 Year
  Sex: Male
  Weight: 73 kg

DRUGS (4)
  1. EMOLLIENTS AND PROTECTIVES [Concomitant]
  2. STEROID ANTIBACTERIALS [Concomitant]
  3. NAPROXEN (ALEVE) [Suspect]
     Indication: HEADACHE
     Dosage: 440 MG, QD
     Route: 048
     Dates: start: 20110101, end: 20110818
  4. UNKNOWN [Concomitant]

REACTIONS (5)
  - PENILE BLISTER [None]
  - ECZEMA [None]
  - BLISTER [None]
  - STAPHYLOCOCCAL INFECTION [None]
  - PRURITUS [None]
